FAERS Safety Report 7417083-7 (Version None)
Quarter: 2011Q2

REPORT INFORMATION
  Report Type: 
  Country: None (occurrence: None)
  Receive Date: 20110415
  Receipt Date: 20110331
  Transmission Date: 20111010
  Serious: Yes (Hospitalization)
  Sender: FDA-Public Use
  Company Number: DE-RANBAXY-2009RR-29364

PATIENT
  Age: 56 Year
  Sex: Male
  Weight: 76 kg

DRUGS (8)
  1. IBUPROFEN [Suspect]
     Indication: BONE PAIN
     Dosage: 400 MG, BID
     Route: 048
     Dates: start: 20090101, end: 20090911
  2. BENALAPRIL [Concomitant]
     Indication: HYPERTENSION
     Dosage: 10 MG, BID
     Route: 048
     Dates: start: 19980101
  3. MESALAMINE [Concomitant]
     Dosage: 1 G, TID
  4. HYDROCHLOROTHIAZIDE [Concomitant]
     Indication: HYPERTENSION
     Dosage: 25 MG, QD
     Route: 048
  5. NEBIVOLOL HCL [Concomitant]
     Indication: HYPERTENSION
     Dosage: 5 MG, QD
     Route: 048
     Dates: start: 20080601
  6. PANTOZOL [Concomitant]
     Indication: PROPHYLAXIS AGAINST GASTROINTESTINAL ULCER
     Dosage: 40 MG, BID
     Route: 048
  7. INEGY [Concomitant]
     Indication: HYPERLIPIDAEMIA
     Dosage: 1 DF, QD
     Route: 048
     Dates: start: 20080601, end: 20090701
  8. ASPIRIN [Suspect]
     Indication: ISCHAEMIC HEART DISEASE PROPHYLAXIS
     Dosage: 100 MG, QD
     Route: 048
     Dates: start: 19980101, end: 20090911

REACTIONS (2)
  - COLITIS [None]
  - DRUG INTERACTION [None]
